FAERS Safety Report 21948458 (Version 1)
Quarter: 2023Q1

REPORT INFORMATION
  Report Type: Spontaneous
  Country: AU (occurrence: AU)
  Receive Date: 20230203
  Receipt Date: 20230203
  Transmission Date: 20230418
  Serious: Yes (Death, Hospitalization, Other)
  Sender: FDA-Public Use
  Company Number: AU-CIPLA LTD.-2023AU00505

PATIENT

DRUGS (12)
  1. IBUPROFEN [Suspect]
     Active Substance: IBUPROFEN
     Indication: Product used for unknown indication
     Dosage: 800 MG, DAILY
     Route: 065
  2. IBUPROFEN [Suspect]
     Active Substance: IBUPROFEN
     Dosage: 1.6 GM
     Route: 065
  3. ESCITALOPRAM [Suspect]
     Active Substance: ESCITALOPRAM OXALATE
     Indication: Product used for unknown indication
     Dosage: UNK
     Route: 065
  4. PANADOL [Suspect]
     Active Substance: ACETAMINOPHEN
     Indication: Product used for unknown indication
     Dosage: 2 GM, PER DAY
     Route: 065
  5. PANADOL [Suspect]
     Active Substance: ACETAMINOPHEN
     Dosage: 4 GRAM PER DAY
     Route: 065
  6. ATORVASTATIN [Suspect]
     Active Substance: ATORVASTATIN
     Indication: Product used for unknown indication
     Dosage: UNK
     Route: 065
  7. COMIRNATY [Suspect]
     Active Substance: TOZINAMERAN
     Indication: COVID-19 immunisation
     Dosage: UNK
     Route: 030
     Dates: start: 20210707
  8. COMIRNATY [Suspect]
     Active Substance: TOZINAMERAN
     Dosage: UNK
     Route: 030
     Dates: start: 20210728
  9. COMIRNATY [Suspect]
     Active Substance: TOZINAMERAN
     Dosage: UNK
     Route: 030
     Dates: start: 20220121
  10. QUETIAPINE [Suspect]
     Active Substance: QUETIAPINE
     Indication: Product used for unknown indication
     Dosage: UNK
     Route: 065
  11. ALLOPURINOL [Concomitant]
     Active Substance: ALLOPURINOL
     Indication: Product used for unknown indication
     Dosage: UNK
     Route: 065
  12. THIAMINE HYDROCHLORIDE [Concomitant]
     Active Substance: THIAMINE HYDROCHLORIDE
     Indication: Product used for unknown indication
     Dosage: UNK
     Route: 065

REACTIONS (27)
  - Abdominal pain [Fatal]
  - Acute kidney injury [Fatal]
  - Blood creatine phosphokinase increased [Fatal]
  - Cerebral infarction [Fatal]
  - Decreased appetite [Fatal]
  - Electrocardiogram abnormal [Fatal]
  - Haematuria [Fatal]
  - Headache [Fatal]
  - Hypogammaglobulinaemia [Fatal]
  - Intestinal ischaemia [Fatal]
  - Liver injury [Fatal]
  - Malaise [Fatal]
  - Metabolic disorder [Fatal]
  - Multiple organ dysfunction syndrome [Fatal]
  - Myalgia [Fatal]
  - Myopathy [Fatal]
  - Myositis [Fatal]
  - Ovarian cancer [Fatal]
  - Pain in extremity [Fatal]
  - Pneumonia [Fatal]
  - Rhabdomyolysis [Fatal]
  - Septic shock [Fatal]
  - Tachycardia [Fatal]
  - Thrombocytopenia [Fatal]
  - Thrombosis [Fatal]
  - Vasoplegia syndrome [Fatal]
  - Vomiting [Fatal]

NARRATIVE: CASE EVENT DATE: 20220121
